FAERS Safety Report 25751377 (Version 1)
Quarter: 2025Q3

REPORT INFORMATION
  Report Type: Spontaneous
  Country: US (occurrence: None)
  Receive Date: 20250901
  Receipt Date: 20250901
  Transmission Date: 20251020
  Serious: Yes (Hospitalization)
  Sender: FDA-CTU
  Company Number: None

PATIENT
  Age: 64 Year
  Sex: Male

DRUGS (1)
  1. TACROLIMUS [Suspect]
     Active Substance: TACROLIMUS
     Indication: Complications of transplanted lung
     Dosage: 1 MG TWICE A DAY ORAL
     Route: 048
     Dates: start: 20220128

REACTIONS (2)
  - Cerebrovascular accident [None]
  - Myocardial infarction [None]

NARRATIVE: CASE EVENT DATE: 20250718
